FAERS Safety Report 8476265-6 (Version None)
Quarter: 2012Q2

REPORT INFORMATION
  Report Type: 
  Country: None (occurrence: None)
  Receive Date: 20120628
  Receipt Date: 20120614
  Transmission Date: 20120825
  Serious: Yes (Other)
  Sender: FDA-Public Use
  Company Number: US-ENDO PHARMACEUTICALS INC.-OPCR20121416

PATIENT
  Age: 48 Year
  Sex: Female

DRUGS (2)
  1. OPANA ER [Suspect]
     Indication: SECONDARY PROGRESSIVE MULTIPLE SCLEROSIS
     Route: 048
     Dates: start: 20120501
  2. OPANA ER [Concomitant]
     Indication: SECONDARY PROGRESSIVE MULTIPLE SCLEROSIS
     Dosage: UNKNOWN
     Route: 048
     Dates: start: 20100101, end: 20120501

REACTIONS (4)
  - ABDOMINAL DISCOMFORT [None]
  - MEDICATION RESIDUE [None]
  - DRUG EFFECT DECREASED [None]
  - INTENTIONAL DRUG MISUSE [None]
